FAERS Safety Report 15774965 (Version 1)
Quarter: 2018Q4

REPORT INFORMATION
  Report Type: Spontaneous
  Country: SE (occurrence: SE)
  Receive Date: 20181230
  Receipt Date: 20181230
  Transmission Date: 20190205
  Serious: Yes (Other)
  Sender: FDA-Public Use
  Company Number: SE-TEVA-2018-SE-992359

PATIENT
  Age: 57 Year
  Sex: Female

DRUGS (16)
  1. MONTELUKAST [Suspect]
     Active Substance: MONTELUKAST SODIUM
     Indication: ASTHMA
     Dosage: 10 MILLIGRAM DAILY;
     Route: 048
     Dates: start: 20140220, end: 20140220
  2. SERTRALINE [Concomitant]
     Active Substance: SERTRALINE HYDROCHLORIDE
  3. OMEPRAZOL [Concomitant]
     Active Substance: OMEPRAZOLE
  4. LUNELAX [Concomitant]
     Active Substance: HERBALS\PLANTAGO OVATA LEAF
  5. IMOVANE [Concomitant]
     Active Substance: ZOPICLONE
  6. PULMICORT TURBUHALER [Concomitant]
     Active Substance: BUDESONIDE
  7. DIKLOFENAK [Concomitant]
     Active Substance: DICLOFENAC SODIUM
  8. KALCIPOS-D [Concomitant]
     Active Substance: CALCIUM CARBONATE\CHOLECALCIFEROL
  9. SUMATRIPTAN. [Concomitant]
     Active Substance: SUMATRIPTAN
  10. AMLODIPIN [Concomitant]
     Active Substance: AMLODIPINE BESYLATE
  11. SIMVASTATIN. [Concomitant]
     Active Substance: SIMVASTATIN
  12. MAGNESIUM [Concomitant]
     Active Substance: MAGNESIUM
  13. ALVEDON [Concomitant]
     Active Substance: ACETAMINOPHEN
  14. LOSARTAN/HYDROKLORTIAZID [Concomitant]
     Active Substance: HYDROCHLOROTHIAZIDE\LOSARTAN
  15. BRICANYL [Concomitant]
     Active Substance: TERBUTALINE SULFATE
  16. NASONEX [Concomitant]
     Active Substance: MOMETASONE FUROATE

REACTIONS (6)
  - Palpitations [Recovered/Resolved]
  - Fatigue [Recovered/Resolved]
  - Swelling face [Recovered/Resolved]
  - Pharyngeal oedema [Recovered/Resolved]
  - Depressed mood [Recovered/Resolved]
  - Headache [Recovered/Resolved]

NARRATIVE: CASE EVENT DATE: 20140220
